FAERS Safety Report 7249213-4 (Version None)
Quarter: 2011Q1

REPORT INFORMATION
  Report Type: 
  Country: None (occurrence: None)
  Receive Date: 20110128
  Receipt Date: 20101204
  Transmission Date: 20110831
  Serious: Yes (Other)
  Sender: FDA-Public Use
  Company Number: ES-BAYER-2010-003599

PATIENT
  Age: 60 Year
  Sex: Male

DRUGS (1)
  1. MOXIFLOXACIN [Suspect]
     Indication: STAPHYLOCOCCAL INFECTION
     Dosage: DAILY DOSE 400 MG
     Route: 048

REACTIONS (2)
  - IMPLANT SITE INFECTION [None]
  - INFECTION [None]
